FAERS Safety Report 8506591-3 (Version None)
Quarter: 2012Q3

REPORT INFORMATION
  Report Type: 
  Country: None (occurrence: None)
  Receive Date: 20120712
  Receipt Date: 20120704
  Transmission Date: 20120928
  Serious: Yes (Hospitalization)
  Sender: FDA-Public Use
  Company Number: CA-BRISTOL-MYERS SQUIBB COMPANY-16262297

PATIENT
  Age: 65 Year
  Sex: Female

DRUGS (9)
  1. DILANTIN [Concomitant]
     Dates: start: 20111201
  2. RANITIDINE [Concomitant]
     Route: 048
     Dates: start: 20111011
  3. DIOVAN [Concomitant]
     Route: 048
     Dates: start: 20090101
  4. LEVAQUIN [Concomitant]
     Dates: start: 20111129
  5. MULTIVITAMINS + IRON [Concomitant]
     Dates: start: 20120420
  6. IPILIMUMAB [Suspect]
     Indication: MALIGNANT MELANOMA
     Dosage: 18OCT11 REINDUCTION ON UNK-04MAY12
     Route: 042
     Dates: start: 20110816
  7. METOPROLOL TARTRATE [Concomitant]
     Route: 048
     Dates: start: 20080101
  8. DEXAMETHASONE SODIUM POSPHATE [Concomitant]
     Dates: start: 20111007
  9. LEVOTHYROXINE SODIUM [Concomitant]
     Route: 048
     Dates: start: 20111104

REACTIONS (2)
  - CONVULSION [None]
  - PYREXIA [None]
